FAERS Safety Report 9550157 (Version 6)
Quarter: 2014Q2

REPORT INFORMATION
  Report Type: Report from Study
  Country: DE (occurrence: DE)
  Receive Date: 20130924
  Receipt Date: 20140610
  Transmission Date: 20141212
  Serious: Yes (Hospitalization, Disabling)
  Sender: FDA-Public Use
  Company Number: PHHY2013DE105275

PATIENT
  Sex: Female

DRUGS (2)
  1. FTY 720 [Suspect]
     Indication: MULTIPLE SCLEROSIS
     Dosage: 0.5 MG, QD
     Route: 048
     Dates: start: 20130129, end: 20130915
  2. LYRICA [Concomitant]
     Dosage: 150 MG/ DAY

REACTIONS (2)
  - Herpes zoster [Recovered/Resolved]
  - Lymphocyte count decreased [Unknown]
